FAERS Safety Report 4523652-4 (Version None)
Quarter: 2004Q4

REPORT INFORMATION
  Report Type: 
  Country: None (occurrence: None)
  Receive Date: 20041210
  Receipt Date: 20041210
  Transmission Date: 20050328
  Serious: Yes (Hospitalization)
  Sender: FDA-Public Use
  Company Number: None

PATIENT
  Age: 61 Year
  Sex: Male
  Weight: 88 kg

DRUGS (5)
  1. CIPRO [Suspect]
     Indication: ABDOMINAL PAIN
     Dosage: 400 MG IV Q 12 H [2 DOSES]
     Route: 042
     Dates: start: 20041203
  2. TORADOL [Concomitant]
  3. MORPHINE [Concomitant]
  4. TOPROL-XL [Concomitant]
  5. LASIX [Concomitant]

REACTIONS (9)
  - ABNORMAL BEHAVIOUR [None]
  - AGITATION [None]
  - AMNESIA [None]
  - CONFUSIONAL STATE [None]
  - DELUSION [None]
  - HALLUCINATION [None]
  - INCOHERENT [None]
  - MEMORY IMPAIRMENT [None]
  - PARANOIA [None]
